FAERS Safety Report 6428315-6 (Version None)
Quarter: 2009Q4

REPORT INFORMATION
  Report Type: 
  Country: None (occurrence: None)
  Receive Date: 20091104
  Receipt Date: 20091104
  Transmission Date: 20100525
  Serious: No
  Sender: FDA-Public Use
  Company Number: None

PATIENT
  Age: 60 Year
  Sex: Male
  Weight: 110.7 kg

DRUGS (1)
  1. ALPRAZOLAM [Suspect]
     Indication: POST-TRAUMATIC STRESS DISORDER
     Dosage: 1MG BID PO
     Route: 048
     Dates: start: 20090415, end: 20090428

REACTIONS (5)
  - AGITATION [None]
  - ANXIETY [None]
  - DRUG INEFFECTIVE [None]
  - PANIC ATTACK [None]
  - PRODUCT SUBSTITUTION ISSUE [None]
